FAERS Safety Report 12953864 (Version 2)
Quarter: 2016Q4

REPORT INFORMATION
  Report Type: Spontaneous
  Country: US (occurrence: US)
  Receive Date: 20161118
  Receipt Date: 20161121
  Transmission Date: 20170207
  Serious: No
  Sender: FDA-Public Use
  Company Number: US-BIOGEN-2016BI00318012

PATIENT
  Sex: Female
  Weight: 70 kg

DRUGS (1)
  1. TECFIDERA [Suspect]
     Active Substance: DIMETHYL FUMARATE
     Indication: PRODUCT USED FOR UNKNOWN INDICATION
     Route: 065

REACTIONS (9)
  - Carpal tunnel syndrome [Unknown]
  - Herpes simplex [Unknown]
  - Asthma [Unknown]
  - Multiple fractures [Unknown]
  - Pneumonia [Unknown]
  - Cardiac murmur [Unknown]
  - Urinary tract infection [Unknown]
  - Drug intolerance [Unknown]
  - Genital herpes [Unknown]
